FAERS Safety Report 10615770 (Version 2)
Quarter: 2015Q1

REPORT INFORMATION
  Report Type: Spontaneous
  Country: US (occurrence: US)
  Receive Date: 20141201
  Receipt Date: 20150106
  Transmission Date: 20150720
  Serious: Yes (Death, Hospitalization)
  Sender: FDA-Public Use
  Company Number: US-JNJFOC-20141116158

PATIENT
  Age: 53 Year
  Sex: Male
  Weight: 74.84 kg

DRUGS (12)
  1. CASODEX [Concomitant]
     Active Substance: BICALUTAMIDE
     Route: 065
  2. PERCOCET [Suspect]
     Active Substance: ACETAMINOPHEN\OXYCODONE HYDROCHLORIDE
     Indication: PROSTATE CANCER
     Dosage: 10-325 MG 1 TABLET EVERY 4 HOURS (P.R.N) PAIN
     Route: 048
     Dates: start: 20141027
  3. XOFIGO [Concomitant]
     Active Substance: RADIUM RA-223 DICHLORIDE
     Dosage: AS NEEDED
     Route: 042
  4. CIPRO [Concomitant]
     Active Substance: CIPROFLOXACIN HYDROCHLORIDE
     Dosage: EVERY 4 HOURS (P.R.N) PAIN
     Route: 048
  5. MEGACE [Concomitant]
     Active Substance: MEGESTROL ACETATE
     Dosage: AT NIGHT, # 90 FOR 90 DAYS
     Route: 048
     Dates: start: 20141028
  6. DILAUDID [Concomitant]
     Active Substance: HYDROMORPHONE HYDROCHLORIDE
     Dosage: EVERY 4 HOURS (P.R.N) PAIN
     Route: 048
     Dates: start: 20141017
  7. PREDNISONE. [Suspect]
     Active Substance: PREDNISONE
     Indication: PROSTATE CANCER
     Dosage: STRENGTH: 250 MG
     Route: 048
     Dates: start: 20140909
  8. FENTANYL. [Concomitant]
     Active Substance: FENTANYL
     Dosage: 25MCG/HR PATCH 72 HR PATCH 72 HR EVERY THREE DAYS, 10 PATCH
     Route: 065
     Dates: start: 20141028
  9. FENTANYL. [Concomitant]
     Active Substance: FENTANYL
     Dosage: 25MCG/HR PATCH 72 HR
     Route: 065
     Dates: start: 20140925, end: 20141025
  10. CALCIUM [Concomitant]
     Active Substance: CALCIUM
     Dosage: EVERY 4 HOURS (P.R.N) PAIN
     Route: 048
  11. ZYTIGA [Suspect]
     Active Substance: ABIRATERONE ACETATE
     Indication: PROSTATE CANCER
     Dosage: STRENGTH: 250 MG
     Route: 048
     Dates: start: 20140909, end: 20141028
  12. DICLOFENAC SODIUM. [Concomitant]
     Active Substance: DICLOFENAC SODIUM
     Dosage: EVERY 4 HOURS (P.R.N) PAIN
     Route: 048
     Dates: start: 20141017

REACTIONS (7)
  - Death [Fatal]
  - Platelet count decreased [Unknown]
  - Swelling [Unknown]
  - Constipation [Unknown]
  - Contusion [Unknown]
  - Prostate cancer metastatic [Unknown]
  - Hospitalisation [Not Recovered/Not Resolved]

NARRATIVE: CASE EVENT DATE: 20140909
